FAERS Safety Report 6237257-0 (Version None)
Quarter: 2009Q2

REPORT INFORMATION
  Report Type: 
  Country: None (occurrence: None)
  Receive Date: 20090619
  Receipt Date: 20090615
  Transmission Date: 20091009
  Serious: Yes (Death, Other)
  Sender: FDA-Public Use
  Company Number: HU-ROCHE-637949

PATIENT
  Age: 20 Year
  Sex: Male

DRUGS (5)
  1. CLONAZEPAM [Suspect]
     Indication: DRUG USE FOR UNKNOWN INDICATION
     Route: 065
  2. XANAX [Suspect]
     Indication: DRUG USE FOR UNKNOWN INDICATION
     Route: 065
  3. ECSTASY [Suspect]
     Indication: DRUG USE FOR UNKNOWN INDICATION
     Route: 065
  4. THC [Suspect]
     Indication: DRUG USE FOR UNKNOWN INDICATION
     Route: 065
  5. ALCOHOL [Concomitant]
     Dates: start: 20030227

REACTIONS (9)
  - BRAIN OEDEMA [None]
  - BRONCHITIS [None]
  - CARDIOMYOPATHY [None]
  - CEREBRAL DISORDER [None]
  - EMPHYSEMA [None]
  - MYASTHENIA GRAVIS [None]
  - PULMONARY OEDEMA [None]
  - SHOCK [None]
  - THYMUS DISORDER [None]
